FAERS Safety Report 25429667 (Version 2)
Quarter: 2025Q3

REPORT INFORMATION
  Report Type: Spontaneous
  Country: US (occurrence: US)
  Receive Date: 20250612
  Receipt Date: 20250828
  Transmission Date: 20251021
  Serious: No
  Sender: SANOFI AVENTIS
  Company Number: US-SA-2025SA166527

PATIENT
  Age: 44 Year
  Sex: Female
  Weight: 93.18 kg

DRUGS (16)
  1. DUPIXENT [Suspect]
     Active Substance: DUPILUMAB
     Indication: Asthma
     Dosage: 300 MG, QOW
     Route: 058
     Dates: end: 202505
  2. DUPIXENT [Suspect]
     Active Substance: DUPILUMAB
     Dosage: 300 MG, QOW
     Route: 058
  3. FLUOXETINE HYDROCHLORIDE [Concomitant]
     Active Substance: FLUOXETINE HYDROCHLORIDE
  4. VRAYLAR [Concomitant]
     Active Substance: CARIPRAZINE
  5. SINGULAIR [Concomitant]
     Active Substance: MONTELUKAST SODIUM
  6. BREO ELLIPTA [Concomitant]
     Active Substance: FLUTICASONE FUROATE\VILANTEROL TRIFENATATE
  7. PROZAC [Concomitant]
     Active Substance: FLUOXETINE HYDROCHLORIDE
  8. ZYRTEC [Concomitant]
     Active Substance: CETIRIZINE HYDROCHLORIDE
  9. LORAZEPAM [Concomitant]
     Active Substance: LORAZEPAM
  10. AMITRIPTYLINE HYDROCHLORIDE [Concomitant]
     Active Substance: AMITRIPTYLINE HYDROCHLORIDE
  11. ROBAXIN [Concomitant]
     Active Substance: METHOCARBAMOL
  12. ZEPBOUND [Concomitant]
     Active Substance: TIRZEPATIDE
  13. MAGNESIUM GLYCINATE [Concomitant]
     Active Substance: MAGNESIUM GLYCINATE
  14. GABAPENTIN [Concomitant]
     Active Substance: GABAPENTIN
  15. ALBUTEROL SULFATE [Concomitant]
     Active Substance: ALBUTEROL SULFATE
  16. SPIRIVA [Concomitant]
     Active Substance: TIOTROPIUM BROMIDE MONOHYDRATE

REACTIONS (5)
  - Chest discomfort [Unknown]
  - Product dose omission issue [Unknown]
  - Rhinorrhoea [Unknown]
  - Throat irritation [Unknown]
  - Wheezing [Unknown]

NARRATIVE: CASE EVENT DATE: 20250601
